FAERS Safety Report 6841774-X (Version None)
Quarter: 2010Q3

REPORT INFORMATION
  Report Type: 
  Country: None (occurrence: None)
  Receive Date: 20100709
  Receipt Date: 20100628
  Transmission Date: 20110219
  Serious: Yes (Other)
  Sender: FDA-Public Use
  Company Number: 014652

PATIENT
  Sex: Female
  Weight: 45 kg

DRUGS (6)
  1. LACOSAMIDE [Suspect]
     Indication: EPILEPSY
     Dosage: (50 MG QD ORAL)
     Route: 048
     Dates: start: 20100606
  2. LEVETIRACETAM [Concomitant]
  3. VALPROATE SODIUM [Concomitant]
  4. HALOPERIDOL [Concomitant]
  5. MEMANTINE [Concomitant]
  6. FLURAZEPAM [Concomitant]

REACTIONS (1)
  - THERAPEUTIC RESPONSE UNEXPECTED [None]
